FAERS Safety Report 23751337 (Version 1)
Quarter: 2024Q2

REPORT INFORMATION
  Report Type: Spontaneous
  Country: US (occurrence: None)
  Receive Date: 20240416
  Receipt Date: 20240416
  Transmission Date: 20240716
  Serious: No
  Sender: FDA-Public Use
  Company Number: None

PATIENT
  Age: 55 Year
  Sex: Female

DRUGS (1)
  1. DIMETHYL FUMARATE [Suspect]
     Active Substance: DIMETHYL FUMARATE
     Dosage: FREQUENCY : TWICE A DAY;?

REACTIONS (5)
  - Headache [None]
  - Nausea [None]
  - Asthenia [None]
  - Product substitution issue [None]
  - Drug ineffective [None]
